FAERS Safety Report 4339204-5 (Version None)
Quarter: 2004Q2

REPORT INFORMATION
  Report Type: 
  Country: None (occurrence: None)
  Receive Date: 20040415
  Receipt Date: 20040309
  Transmission Date: 20050107
  Serious: Yes (Other)
  Sender: FDA-Public Use
  Company Number: PHNU2004DE01165

PATIENT
  Age: 65 Year

DRUGS (2)
  1. CALCITONIN SALMON [Suspect]
     Indication: OSTEOPOROSIS
     Dates: start: 20020101, end: 20040101
  2. CALCITONIN SALMON [Suspect]
     Dates: start: 20040201, end: 20040101

REACTIONS (1)
  - DYSPNOEA [None]
